FAERS Safety Report 6371071-0 (Version None)
Quarter: 2009Q3

REPORT INFORMATION
  Report Type: 
  Country: None (occurrence: None)
  Receive Date: 20090923
  Receipt Date: 20090911
  Transmission Date: 20100115
  Serious: Yes (Other)
  Sender: FDA-Public Use
  Company Number: PHHY2009BR39200

PATIENT
  Sex: Female

DRUGS (5)
  1. FORASEQ [Suspect]
     Indication: ASTHMA
     Dosage: ONCE A DAY IN MORNING
  2. FORASEQ [Suspect]
     Dosage: TWICE A DAY
     Dates: start: 20090501
  3. SYNTHROID [Concomitant]
  4. BEROTEC [Concomitant]
  5. ATROVENT [Concomitant]

REACTIONS (14)
  - BLOOD CHOLESTEROL INCREASED [None]
  - BRONCHOSPASM [None]
  - CATARACT OPERATION [None]
  - DEPRESSION [None]
  - EYE DISORDER [None]
  - HYPERTENSION [None]
  - MALAISE [None]
  - MUSCLE SPASMS [None]
  - OSTEOARTHRITIS [None]
  - RESPIRATORY ARREST [None]
  - TONGUE DISCOLOURATION [None]
  - TREATMENT NONCOMPLIANCE [None]
  - VEIN DISORDER [None]
  - VITREOUS DETACHMENT [None]
